FAERS Safety Report 5889629-1 (Version None)
Quarter: 2008Q3

REPORT INFORMATION
  Report Type: 
  Country: None (occurrence: None)
  Receive Date: 20080919
  Receipt Date: 20080912
  Transmission Date: 20090109
  Serious: Yes (Other)
  Sender: FDA-Public Use
  Company Number: B0536842A

PATIENT
  Age: 57 Year
  Sex: Female
  Weight: 54.81 kg

DRUGS (2)
  1. CLENIL [Suspect]
     Indication: ASTHMA
     Dosage: 200MCG PER DAY
     Route: 055
     Dates: start: 20080804, end: 20080908
  2. VENTOLIN [Concomitant]

REACTIONS (1)
  - DYSPNOEA [None]
